FAERS Safety Report 24354256 (Version 2)
Quarter: 2024Q3

REPORT INFORMATION
  Report Type: Spontaneous
  Country: US (occurrence: US)
  Receive Date: 20240923
  Receipt Date: 20240924
  Transmission Date: 20241016
  Serious: No
  Sender: PFIZER
  Company Number: US-PFIZER INC-PV202400122700

PATIENT
  Age: 51 Year
  Sex: Female

DRUGS (7)
  1. TUKYSA [Interacting]
     Active Substance: TUCATINIB
     Indication: Colon cancer metastatic
     Dosage: 300 MG (2 CAPSULES OF 150 MG) 2X/DAY/2 TABLETS TWICE DAILY
  2. TUKYSA [Interacting]
     Active Substance: TUCATINIB
     Indication: Metastases to lymph nodes
  3. AMLODIPINE [Interacting]
     Active Substance: AMLODIPINE BESYLATE
     Indication: Colon cancer metastatic
     Dosage: TAKE HALF A DOSE
  4. AMLODIPINE [Interacting]
     Active Substance: AMLODIPINE BESYLATE
     Indication: Metastases to lymph nodes
  5. HYDROCODONE [Interacting]
     Active Substance: HYDROCODONE
     Indication: Colon cancer metastatic
     Dosage: TAKE HALF A DOSE
  6. HYDROCODONE [Interacting]
     Active Substance: HYDROCODONE
     Indication: Metastases to lymph nodes
  7. XANAX [Concomitant]
     Active Substance: ALPRAZOLAM
     Dosage: UNK

REACTIONS (2)
  - Drug interaction [Unknown]
  - Off label use [Unknown]
